FAERS Safety Report 21336794 (Version 2)
Quarter: 2022Q3

REPORT INFORMATION
  Report Type: Spontaneous
  Country: CN (occurrence: CN)
  Receive Date: 20220915
  Receipt Date: 20220920
  Transmission Date: 20221027
  Serious: Yes (Death, Life-Threatening, Hospitalization, Other)
  Sender: FDA-Public Use
  Company Number: None

PATIENT
  Age: 35 Year
  Sex: Male

DRUGS (20)
  1. PREDNISOLONE [Suspect]
     Active Substance: PREDNISOLONE
     Indication: Renal transplant
     Dosage: UNK
     Route: 065
  2. TACROLIMUS [Suspect]
     Active Substance: TACROLIMUS
     Indication: Renal transplant
     Dosage: UNK, 6-8 NG/ML
     Route: 065
  3. TACROLIMUS [Suspect]
     Active Substance: TACROLIMUS
     Dosage: UNK, USED AGAIN ON THE 63RD DAY
     Route: 065
  4. MYCOPHENOLATE MOFETIL [Suspect]
     Active Substance: MYCOPHENOLATE MOFETIL
     Indication: Renal transplant
     Dosage: UNK
     Route: 065
  5. CYCLOSPORINE [Suspect]
     Active Substance: CYCLOSPORINE
     Indication: Renal transplant
     Dosage: UNK, REPLACED ON THE 63RD DAY
     Route: 065
  6. METHYLPREDNISOLONE [Suspect]
     Active Substance: METHYLPREDNISOLONE
     Indication: Delayed graft function
     Dosage: 21.15 MILLIGRAM/KILOGRAM, IMMUNE INDUCTION THERAPY
     Route: 065
  7. METHYLPREDNISOLONE [Suspect]
     Active Substance: METHYLPREDNISOLONE
     Indication: Renal transplant
     Dosage: 1000 MILLIGRAM, DURING THE OPERATION
     Route: 065
  8. METHYLPREDNISOLONE [Suspect]
     Active Substance: METHYLPREDNISOLONE
     Dosage: 500 MILLIGRAM, 1ST DAY AFTER SURGERY
     Route: 065
  9. METHYLPREDNISOLONE [Suspect]
     Active Substance: METHYLPREDNISOLONE
     Dosage: 240 MILLIGRAM, 2ND DAY AFTER SURGERY
     Route: 065
  10. METHYLPREDNISOLONE [Suspect]
     Active Substance: METHYLPREDNISOLONE
     Dosage: 120 MILLIGRAM, 3RD DAY AFTER SURGERY
     Route: 065
  11. METHYLPREDNISOLONE [Suspect]
     Active Substance: METHYLPREDNISOLONE
     Dosage: 80 MILLIGRAM, 4TH DAY AFTER SURGERY
     Route: 065
  12. METHYLPREDNISOLONE [Suspect]
     Active Substance: METHYLPREDNISOLONE
     Dosage: 40 MILLIGRAM, 5TH DAY AFTER SURGERY
     Route: 065
  13. BASILIXIMAB [Suspect]
     Active Substance: BASILIXIMAB
     Indication: Delayed graft function
     Dosage: 0.24 MILLIGRAM/KILOGRAM, IMMUNE INDUCTION THERAPY
     Route: 065
  14. BASILIXIMAB [Suspect]
     Active Substance: BASILIXIMAB
     Indication: Renal transplant
     Dosage: 20 MILLIGRAM, DURING THE OPERATION
     Route: 065
  15. LAPINE T-LYMPHOCYTE IMMUNE GLOBULIN [Suspect]
     Active Substance: LAPINE T-LYMPHOCYTE IMMUNE GLOBULIN
     Indication: Delayed graft function
     Dosage: 1.83 MILLIGRAM/KILOGRAM, IMMUNE INDUCTION THERAPY
     Route: 065
  16. LAPINE T-LYMPHOCYTE IMMUNE GLOBULIN [Suspect]
     Active Substance: LAPINE T-LYMPHOCYTE IMMUNE GLOBULIN
     Dosage: 50 MILLIGRAM, 1TH DAY AFTER SURGERY
     Route: 065
  17. LAPINE T-LYMPHOCYTE IMMUNE GLOBULIN [Suspect]
     Active Substance: LAPINE T-LYMPHOCYTE IMMUNE GLOBULIN
     Dosage: 25 MILLIGRAM, 2TH DAY AFTER SURGERY
     Route: 065
  18. LAPINE T-LYMPHOCYTE IMMUNE GLOBULIN [Suspect]
     Active Substance: LAPINE T-LYMPHOCYTE IMMUNE GLOBULIN
     Dosage: 25 MILLIGRAM, 3TH DAY AFTER SURGERY
     Route: 065
  19. LAPINE T-LYMPHOCYTE IMMUNE GLOBULIN [Suspect]
     Active Substance: LAPINE T-LYMPHOCYTE IMMUNE GLOBULIN
     Dosage: 25 MILLIGRAM, 4TH DAY AFTER SURGERY
     Route: 065
  20. LAPINE T-LYMPHOCYTE IMMUNE GLOBULIN [Suspect]
     Active Substance: LAPINE T-LYMPHOCYTE IMMUNE GLOBULIN
     Dosage: 25 MILLIGRAM, 5TH DAY AFTER SURGERY
     Route: 065

REACTIONS (21)
  - Anuria [Fatal]
  - Tricuspid valve incompetence [Fatal]
  - Acute myocardial infarction [Fatal]
  - Mitral valve incompetence [Fatal]
  - Angina pectoris [Fatal]
  - Disseminated intravascular coagulation [Fatal]
  - Renal haemorrhage [Fatal]
  - Ventricular fibrillation [Fatal]
  - Cardiac arrest [Fatal]
  - Peripheral artery thrombosis [Fatal]
  - Septic shock [Fatal]
  - Endocarditis bacterial [Fatal]
  - Corynebacterium infection [Fatal]
  - Haematuria [Unknown]
  - Micturition urgency [Unknown]
  - Pollakiuria [Unknown]
  - Sinus tachycardia [Recovered/Resolved]
  - Supraventricular extrasystoles [Recovered/Resolved]
  - Drug intolerance [Unknown]
  - Enterococcal infection [Unknown]
  - Pseudomonas infection [Unknown]
